FAERS Safety Report 7266064-5 (Version None)
Quarter: 2011Q1

REPORT INFORMATION
  Report Type: 
  Country: None (occurrence: None)
  Receive Date: 20110131
  Receipt Date: 20100216
  Transmission Date: 20110831
  Serious: Yes (Hospitalization)
  Sender: FDA-Public Use
  Company Number: US-ABBOTT-10P-163-0624074-00

PATIENT
  Age: 60 Year
  Sex: Male

DRUGS (1)
  1. LEUPROLIDE DEPOT [Suspect]
     Indication: PROSTATE CANCER

REACTIONS (1)
  - PITUITARY HAEMORRHAGE [None]
